FAERS Safety Report 11273006 (Version 1)
Quarter: 2015Q3

REPORT INFORMATION
  Report Type: Report from Study
  Country: GR (occurrence: GR)
  Receive Date: 20150715
  Receipt Date: 20150715
  Transmission Date: 20151125
  Serious: Yes (Other)
  Sender: FDA-Public Use
  Company Number: GR-PFIZER INC-2015229014

PATIENT
  Sex: Male

DRUGS (1)
  1. PHENYTOIN. [Suspect]
     Active Substance: PHENYTOIN
     Indication: GENERALISED TONIC-CLONIC SEIZURE
     Dosage: 8 MG/KG, DAILY

REACTIONS (5)
  - Neurodegenerative disorder [Unknown]
  - Coordination abnormal [Unknown]
  - Cerebellar ataxia [Unknown]
  - Cerebellar atrophy [Unknown]
  - Nystagmus [Unknown]
